FAERS Safety Report 12407911 (Version 1)
Quarter: 2016Q2

REPORT INFORMATION
  Report Type: Report from Study
  Country: BR (occurrence: BR)
  Receive Date: 20160526
  Receipt Date: 20160526
  Transmission Date: 20160815
  Serious: Yes (Hospitalization)
  Sender: FDA-Public Use
  Company Number: PHHY2016BR071466

PATIENT
  Age: 86 Year
  Sex: Female
  Weight: 78 kg

DRUGS (1)
  1. EXELON [Suspect]
     Active Substance: RIVASTIGMINE TARTRATE
     Indication: DEMENTIA ALZHEIMER^S TYPE
     Dosage: 4.5 MG, BID
     Route: 048
     Dates: start: 2010

REACTIONS (5)
  - Hemiplegia [Unknown]
  - Speech disorder [Unknown]
  - Dysphagia [Unknown]
  - Memory impairment [Unknown]
  - Cerebrovascular accident [Not Recovered/Not Resolved]

NARRATIVE: CASE EVENT DATE: 20160412
